FAERS Safety Report 8367173-X (Version None)
Quarter: 2012Q2

REPORT INFORMATION
  Report Type: 
  Country: None (occurrence: None)
  Receive Date: 20120517
  Receipt Date: 20120502
  Transmission Date: 20120825
  Serious: Yes (Hospitalization)
  Sender: FDA-Public Use
  Company Number: US-VERTEX PHARMACEUTICALS INC.-AE-2012-006343

PATIENT
  Sex: Male
  Weight: 111.23 kg

DRUGS (10)
  1. RIBASPHERE [Concomitant]
     Dates: start: 20120420
  2. LAMICTAL [Concomitant]
  3. INCIVEK [Suspect]
     Route: 048
     Dates: start: 20120420
  4. ATIVAN [Concomitant]
  5. PEGASYS [Concomitant]
     Indication: HEPATITIS C
     Route: 058
     Dates: start: 20120106, end: 20120218
  6. PEGASYS [Concomitant]
     Dates: start: 20120420
  7. INCIVEK [Suspect]
     Indication: HEPATITIS C
     Route: 048
     Dates: start: 20120106, end: 20120221
  8. COUMADIN [Concomitant]
  9. SEROQUEL [Concomitant]
  10. RIBASPHERE [Concomitant]
     Indication: HEPATITIS C
     Route: 048
     Dates: start: 20120106, end: 20120221

REACTIONS (6)
  - THROMBOSIS [None]
  - WHITE BLOOD CELL COUNT DECREASED [None]
  - ANAEMIA [None]
  - PNEUMONIA [None]
  - NAUSEA [None]
  - ANORECTAL DISCOMFORT [None]
